FAERS Safety Report 13026942 (Version 8)
Quarter: 2017Q2

REPORT INFORMATION
  Report Type: Report from Study
  Country: US (occurrence: US)
  Receive Date: 20161214
  Receipt Date: 20170424
  Transmission Date: 20170830
  Serious: Yes (Other)
  Sender: FDA-Public Use
  Company Number: US-PFIZER INC-2016541177

PATIENT
  Age: 64 Year
  Sex: Female

DRUGS (3)
  1. IBRANCE [Suspect]
     Active Substance: PALBOCICLIB
     Dosage: 100 MG, CYCLIC (DAY 1- DAY 21 FOLLOWED BY 7 DAYS OFF)
     Route: 048
     Dates: start: 20161108
  2. IBRANCE [Suspect]
     Active Substance: PALBOCICLIB
     Dosage: 100 MG, DAILY
     Route: 048
     Dates: start: 20161221
  3. IBRANCE [Suspect]
     Active Substance: PALBOCICLIB
     Indication: BREAST CANCER
     Dosage: 125 MG, DAILY
     Route: 048
     Dates: start: 20161108, end: 20161120

REACTIONS (17)
  - Diverticulum [Recovering/Resolving]
  - Oral pain [Recovered/Resolved]
  - Flatulence [Unknown]
  - Fatigue [Not Recovered/Not Resolved]
  - Oral herpes [Recovered/Resolved]
  - Blindness [Recovered/Resolved]
  - Paraesthesia [Unknown]
  - Abdominal discomfort [Recovered/Resolved]
  - Visual impairment [Recovered/Resolved]
  - Stomatitis [Recovered/Resolved]
  - Nausea [Unknown]
  - Alopecia [Unknown]
  - Decreased appetite [Unknown]
  - Dysgeusia [Unknown]
  - Migraine [Unknown]
  - Diverticulitis [Unknown]
  - White blood cell count decreased [Not Recovered/Not Resolved]

NARRATIVE: CASE EVENT DATE: 2016
